FAERS Safety Report 14880347 (Version 2)
Quarter: 2018Q2

REPORT INFORMATION
  Report Type: Spontaneous
  Country: US (occurrence: US)
  Receive Date: 20180511
  Receipt Date: 20180622
  Transmission Date: 20180711
  Serious: No
  Sender: FDA-Public Use
  Company Number: US-ASTRAZENECA-2018SE48719

PATIENT

DRUGS (1)
  1. SYMBICORT [Suspect]
     Active Substance: BUDESONIDE\FORMOTEROL FUMARATE DIHYDRATE
     Dosage: 160/4.5 MCG, UNKNOWN DOSE AND FREQUENCY UNKNOWN
     Route: 055
     Dates: start: 20160210

REACTIONS (4)
  - Chronic obstructive pulmonary disease [Unknown]
  - Drug effect decreased [Unknown]
  - Device failure [Unknown]
  - Intentional device misuse [Unknown]
